FAERS Safety Report 8494574-1 (Version None)
Quarter: 2012Q3

REPORT INFORMATION
  Report Type: 
  Country: None (occurrence: None)
  Receive Date: 20120709
  Receipt Date: 20120705
  Transmission Date: 20120928
  Serious: Yes (Other)
  Sender: FDA-Public Use
  Company Number: PHHY2012AR058034

PATIENT
  Sex: Female

DRUGS (1)
  1. DIOVAN [Suspect]
     Indication: HYPERTENSION
     Dates: start: 20120601

REACTIONS (4)
  - BLOOD PRESSURE INCREASED [None]
  - MOOD ALTERED [None]
  - AGGRESSION [None]
  - FRACTURE [None]
